FAERS Safety Report 7312443-7 (Version None)
Quarter: 2011Q1

REPORT INFORMATION
  Report Type: 
  Country: None (occurrence: None)
  Receive Date: 20110224
  Receipt Date: 20110224
  Transmission Date: 20110831
  Serious: Yes (Hospitalization, Other)
  Sender: FDA-Public Use
  Company Number: FR-ABBOTT-08P-056-0493156-00

PATIENT
  Sex: Male

DRUGS (11)
  1. TRANDOLAPRIL [Suspect]
     Indication: CARDIAC FAILURE CHRONIC
  2. DIGOXIN [Concomitant]
     Indication: HYPERTENSION
     Route: 048
     Dates: start: 20020101
  3. SOLATOL [Concomitant]
     Indication: CARDIAC FAILURE CHRONIC
  4. DIGOXIN [Concomitant]
     Indication: CARDIAC FAILURE CHRONIC
  5. SOLATOL [Concomitant]
     Indication: HYPERTENSION
     Route: 048
  6. EZETIMIBE [Concomitant]
     Indication: HYPERTENSION
     Route: 048
     Dates: start: 20020101, end: 20081117
  7. FLUINDIONE [Interacting]
     Indication: CARDIAC FAILURE CHRONIC
  8. TRANDOLAPRIL [Suspect]
     Indication: HYPERTENSION
     Route: 048
     Dates: start: 20080101, end: 20081117
  9. FLUINDIONE [Interacting]
     Indication: HYPERTENSION
     Route: 048
     Dates: start: 20020101, end: 20081117
  10. EZETIMIBE [Concomitant]
     Indication: CARDIAC FAILURE CHRONIC
  11. MANIDIPINE [Concomitant]
     Indication: HYPERTENSION
     Route: 048
     Dates: start: 20020101, end: 20081117

REACTIONS (8)
  - LOSS OF CONSCIOUSNESS [None]
  - INTERNATIONAL NORMALISED RATIO INCREASED [None]
  - DRUG INTERACTION [None]
  - HAEMATEMESIS [None]
  - OESOPHAGEAL ULCER [None]
  - GAMMA-GLUTAMYLTRANSFERASE INCREASED [None]
  - MELAENA [None]
  - GASTRIC ULCER HAEMORRHAGE [None]
